FAERS Safety Report 7457891-X (Version None)
Quarter: 2011Q2

REPORT INFORMATION
  Report Type: 
  Country: None (occurrence: None)
  Receive Date: 20110504
  Receipt Date: 20110420
  Transmission Date: 20111010
  Serious: Yes (Other)
  Sender: FDA-Public Use
  Company Number: JP-JNJFOC-20101208608

PATIENT
  Age: 67 Year
  Sex: Male
  Weight: 60 kg

DRUGS (9)
  1. REMICADE [Suspect]
     Route: 042
  2. REMICADE [Suspect]
     Indication: PUSTULAR PSORIASIS
     Route: 042
  3. DERMOVATE [Concomitant]
     Indication: PUSTULAR PSORIASIS
  4. REMICADE [Suspect]
     Route: 042
  5. HUMIRA [Concomitant]
     Indication: PUSTULAR PSORIASIS
     Route: 058
  6. LIVALO [Suspect]
     Indication: HYPERLIPIDAEMIA
     Route: 048
  7. NERISONA [Concomitant]
     Indication: PUSTULAR PSORIASIS
  8. TOPSYM [Concomitant]
     Indication: PUSTULAR PSORIASIS
  9. ETRETINATE [Concomitant]
     Indication: PUSTULAR PSORIASIS
     Route: 048

REACTIONS (4)
  - DYSPNOEA [None]
  - TYPE IV HYPERSENSITIVITY REACTION [None]
  - INFUSION RELATED REACTION [None]
  - OXYGEN SATURATION DECREASED [None]
